FAERS Safety Report 8489376-6 (Version None)
Quarter: 2012Q2

REPORT INFORMATION
  Report Type: 
  Country: None (occurrence: None)
  Receive Date: 20120628
  Receipt Date: 20120628
  Transmission Date: 20120825
  Serious: No
  Sender: FDA-Public Use
  Company Number: None

PATIENT
  Age: 54 Year
  Sex: Female
  Weight: 56.246 kg

DRUGS (1)
  1. ONDANSETRON HCL [Suspect]
     Indication: NAUSEA
     Dosage: 4 MG EVERY 6 HOURS PO
     Route: 048
     Dates: start: 20120624, end: 20120626

REACTIONS (7)
  - MEMORY IMPAIRMENT [None]
  - THOUGHT BLOCKING [None]
  - FEAR [None]
  - IMPAIRED WORK ABILITY [None]
  - FRUSTRATION [None]
  - EMOTIONAL DISORDER [None]
  - IMPAIRED DRIVING ABILITY [None]
